FAERS Safety Report 17952509 (Version 1)
Quarter: 2020Q2

REPORT INFORMATION
  Report Type: Spontaneous
  Country: FR (occurrence: FR)
  Receive Date: 20200626
  Receipt Date: 20200626
  Transmission Date: 20200714
  Serious: Yes (Other)
  Sender: FDA-Public Use
  Company Number: NVSC2020FR175742

PATIENT
  Age: 55 Year
  Sex: Male
  Weight: 99 kg

DRUGS (1)
  1. TASIGNA [Suspect]
     Active Substance: NILOTINIB
     Indication: CHRONIC MYELOID LEUKAEMIA
     Dosage: 600 MG, QD
     Route: 048
     Dates: start: 20181001, end: 202004

REACTIONS (1)
  - Retinal ischaemia [Not Recovered/Not Resolved]

NARRATIVE: CASE EVENT DATE: 202004
